FAERS Safety Report 7293042-2 (Version None)
Quarter: 2011Q1

REPORT INFORMATION
  Report Type: 
  Country: None (occurrence: None)
  Receive Date: 20110215
  Receipt Date: 20110202
  Transmission Date: 20110831
  Serious: No
  Sender: FDA-Public Use
  Company Number: US-PFIZER INC-US-WYE-H15304610

PATIENT
  Sex: Female

DRUGS (4)
  1. CYMBALTA [Suspect]
     Dosage: UNK
  2. EFFEXOR XR [Suspect]
     Dosage: UNK
  3. EFFEXOR [Suspect]
     Dosage: UNK
  4. VENLAFAXINE HCL [Suspect]
     Dosage: UNK

REACTIONS (6)
  - WITHDRAWAL SYNDROME [None]
  - PAIN [None]
  - DEPRESSION [None]
  - HEADACHE [None]
  - DRUG INEFFECTIVE [None]
  - HYPERHIDROSIS [None]
